FAERS Safety Report 11648782 (Version 1)
Quarter: 2015Q4

REPORT INFORMATION
  Report Type: Spontaneous
  Country: US (occurrence: US)
  Receive Date: 20151021
  Receipt Date: 20151021
  Transmission Date: 20160304
  Serious: Yes (Hospitalization)
  Sender: FDA-Public Use
  Company Number: US-BAUSCH-BL-2014-004966

PATIENT
  Sex: Female

DRUGS (1)
  1. XENAZINE [Suspect]
     Active Substance: TETRABENAZINE
     Indication: HUNTINGTON^S DISEASE
     Dosage: USING 25 MG TWO AND ONE-HALF TABLETS BY MOUTH THREE TIMES DAILY
     Route: 048
     Dates: start: 201301

REACTIONS (6)
  - Overdose [Unknown]
  - Speech disorder [Recovered/Resolved]
  - Mental impairment [Recovered/Resolved]
  - Drug withdrawal syndrome [Recovered/Resolved]
  - Dehydration [Recovered/Resolved]
  - Drug dose omission [Recovered/Resolved]

NARRATIVE: CASE EVENT DATE: 2015
